FAERS Safety Report 8271227-6 (Version None)
Quarter: 2012Q1

REPORT INFORMATION
  Report Type: 
  Country: None (occurrence: None)
  Receive Date: 20120327
  Receipt Date: 20100105
  Transmission Date: 20120608
  Serious: Yes (Other)
  Sender: FDA-Public Use
  Company Number: PHEH2010US00467

PATIENT
  Age: 88 Year
  Sex: Male

DRUGS (2)
  1. GLEEVEC [Suspect]
     Indication: CHRONIC MYELOID LEUKAEMIA
     Dosage: 400 MG, QD, ORAL
     Route: 048
     Dates: start: 20090116, end: 20100104
  2. GLEEVEC [Suspect]
     Indication: CHROMOSOME ANALYSIS ABNORMAL
     Dosage: 400 MG, QD, ORAL
     Route: 048
     Dates: start: 20090116, end: 20100104

REACTIONS (5)
  - SKIN LESION [None]
  - RASH GENERALISED [None]
  - FUNGAL SKIN INFECTION [None]
  - RASH MACULO-PAPULAR [None]
  - SKIN TOXICITY [None]
